FAERS Safety Report 19645350 (Version 1)
Quarter: 2021Q3

REPORT INFORMATION
  Report Type: Spontaneous
  Country: US (occurrence: US)
  Receive Date: 20210730
  Receipt Date: 20210730
  Transmission Date: 20211014
  Serious: No
  Sender: FDA-Public Use
  Company Number: None

PATIENT
  Sex: Male

DRUGS (2)
  1. KRATOM [Suspect]
     Active Substance: HERBALS\MITRAGYNINE
     Indication: PRODUCT USED FOR UNKNOWN INDICATION
     Dates: start: 20160101
  2. GABAPENTIN. [Concomitant]
     Active Substance: GABAPENTIN

REACTIONS (6)
  - Weight decreased [None]
  - Agitation [None]
  - Mood swings [None]
  - Dyspnoea [None]
  - Kidney infection [None]
  - Drug abuser [None]

NARRATIVE: CASE EVENT DATE: 20210720
